FAERS Safety Report 16796472 (Version 2)
Quarter: 2019Q3

REPORT INFORMATION
  Report Type: Report from Study
  Country: US (occurrence: US)
  Receive Date: 20190911
  Receipt Date: 20190917
  Transmission Date: 20191005
  Serious: No
  Sender: FDA-Public Use
  Company Number: US-SA-2018SA114849

PATIENT
  Age: 44 Year
  Sex: Female

DRUGS (3)
  1. ZANAFLEX [Concomitant]
     Active Substance: TIZANIDINE HYDROCHLORIDE
  2. IBUPROFEN. [Concomitant]
     Active Substance: IBUPROFEN
  3. TERIFLUNOMIDE. [Suspect]
     Active Substance: TERIFLUNOMIDE
     Indication: MULTIPLE SCLEROSIS
     Dosage: 14 MG, QD
     Route: 048
     Dates: start: 20180315

REACTIONS (10)
  - Depression [Unknown]
  - Neck pain [Unknown]
  - Fatigue [Unknown]
  - Back pain [Unknown]
  - Hiccups [Unknown]
  - Skin mass [Unknown]
  - Alopecia [Recovered/Resolved]
  - Feeling abnormal [Unknown]
  - Pain in extremity [Unknown]
  - Headache [Not Recovered/Not Resolved]

NARRATIVE: CASE EVENT DATE: 20180401
